FAERS Safety Report 14346541 (Version 2)
Quarter: 2018Q1

REPORT INFORMATION
  Report Type: Spontaneous
  Country: CZ (occurrence: CZ)
  Receive Date: 20180103
  Receipt Date: 20180108
  Transmission Date: 20180509
  Serious: Yes (Life-Threatening, Hospitalization, Other)
  Sender: FDA-Public Use
  Company Number: CZ-PFIZER INC-2017554292

PATIENT
  Age: 68 Year
  Sex: Female
  Weight: 85 kg

DRUGS (15)
  1. EUPHYLLINE /00012201/ [Concomitant]
     Active Substance: THEOPHYLLINE ANHYDROUS
     Dosage: UNK
     Dates: start: 20140810
  2. DIOVAN [Suspect]
     Active Substance: VALSARTAN
     Dosage: UNK
     Route: 048
     Dates: start: 20160916, end: 20161012
  3. DIOVAN [Suspect]
     Active Substance: VALSARTAN
     Dosage: UNK
     Route: 048
     Dates: start: 20161012
  4. SULFASALAZINE DELAYED-RELEASE [Concomitant]
     Active Substance: SULFASALAZINE
     Dosage: UNK
     Dates: start: 2014, end: 20160307
  5. MEDROL [Suspect]
     Active Substance: METHYLPREDNISOLONE
     Indication: RHEUMATOID ARTHRITIS
     Dosage: 8 MG, 1X/DAY
     Route: 048
     Dates: start: 201601, end: 20160307
  6. DIOVAN [Suspect]
     Active Substance: VALSARTAN
     Indication: CARDIAC FAILURE
     Dosage: 50 MG, 1X/DAY
     Route: 048
     Dates: start: 20150422, end: 20150429
  7. ATROVENT [Concomitant]
     Active Substance: IPRATROPIUM BROMIDE
     Dosage: UNK
     Dates: start: 201410
  8. DIOVAN [Suspect]
     Active Substance: VALSARTAN
     Dosage: UNK
     Route: 048
     Dates: start: 20150514, end: 20150915
  9. MILURIT [Concomitant]
     Active Substance: ALLOPURINOL
     Dosage: UNK
     Dates: start: 200509
  10. PLAQUENIL /00072602/ [Concomitant]
     Active Substance: HYDROXYCHLOROQUINE DIPHOSPHATE
  11. FURIX [Concomitant]
     Active Substance: FUROSEMIDE
     Dosage: UNK
     Dates: start: 20150331
  12. MEDROL [Suspect]
     Active Substance: METHYLPREDNISOLONE
     Dosage: 16 MG, 1X/DAY
     Route: 048
     Dates: start: 20160715
  13. IMIPENEM [Concomitant]
     Active Substance: IMIPENEM
  14. MEDROL [Suspect]
     Active Substance: METHYLPREDNISOLONE
     Dosage: 8 MG, 1X/DAY
     Route: 048
     Dates: end: 20160628
  15. ARAVA [Suspect]
     Active Substance: LEFLUNOMIDE
     Dosage: UNK
     Dates: end: 20160310

REACTIONS (20)
  - Endocarditis [Recovered/Resolved]
  - Peripheral ischaemia [Recovered/Resolved]
  - Sepsis [Recovered/Resolved]
  - Pyrexia [Recovered/Resolved]
  - Leukocytosis [Recovered/Resolved]
  - Acute kidney injury [Recovered/Resolved]
  - Shock [Recovered/Resolved]
  - Atrial fibrillation [Recovered/Resolved]
  - Dyspnoea [Recovered/Resolved with Sequelae]
  - Gastritis [Recovered/Resolved]
  - Hypotension [Recovered/Resolved with Sequelae]
  - Liver injury [Recovered/Resolved]
  - Abdominal pain [Recovered/Resolved]
  - Vulvovaginitis [Recovered/Resolved]
  - Cardiac tamponade [Recovered/Resolved]
  - C-reactive protein increased [Recovered/Resolved]
  - Gastroenteritis [Recovered/Resolved]
  - Pneumonia [Recovered/Resolved]
  - Inflammatory marker increased [Recovered/Resolved]
  - Tachycardia [Recovered/Resolved with Sequelae]

NARRATIVE: CASE EVENT DATE: 20160308
